FAERS Safety Report 7531695-1 (Version None)
Quarter: 2011Q2

REPORT INFORMATION
  Report Type: 
  Country: None (occurrence: None)
  Receive Date: 20110608
  Receipt Date: 20110602
  Transmission Date: 20111010
  Serious: Yes (Other)
  Sender: FDA-Public Use
  Company Number: GB-PFIZER INC-2011120622

PATIENT
  Age: 55 Year
  Sex: Male

DRUGS (2)
  1. ZOMETA [Suspect]
     Dosage: 4 MG, EVERY 4 WEEKS
  2. SUNITINIB MALATE [Suspect]
     Dosage: 50 MG, 1X/DAY FOR 4 WEEKS THEN 2 WEEKS OFF TREATMENT

REACTIONS (3)
  - ORAL DISORDER [None]
  - EXPOSED BONE IN JAW [None]
  - OSTEONECROSIS OF JAW [None]
